FAERS Safety Report 10451445 (Version 3)
Quarter: 2014Q3

REPORT INFORMATION
  Report Type: Spontaneous
  Country: US (occurrence: US)
  Receive Date: 20140912
  Receipt Date: 20140917
  Transmission Date: 20150326
  Serious: Yes (Hospitalization)
  Sender: FDA-Public Use
  Company Number: US-GILEAD-2014-0114651

PATIENT
  Age: 49 Year
  Sex: Female

DRUGS (2)
  1. LETAIRIS [Suspect]
     Active Substance: AMBRISENTAN
     Indication: PRODUCT USED FOR UNKNOWN INDICATION
     Dosage: 10 MG, QD
     Route: 065
     Dates: start: 20121123, end: 2014
  2. VELETRI [Suspect]
     Active Substance: EPOPROSTENOL
     Indication: PRODUCT USED FOR UNKNOWN INDICATION
     Dosage: 40NG/KG/MIN

REACTIONS (7)
  - Vomiting [Unknown]
  - Diarrhoea [Unknown]
  - Fluid retention [Unknown]
  - Flushing [Unknown]
  - Toxicity to various agents [Unknown]
  - Dyspnoea [Unknown]
  - Nausea [Unknown]
